FAERS Safety Report 4917674-9 (Version None)
Quarter: 2006Q1

REPORT INFORMATION
  Report Type: 
  Country: None (occurrence: None)
  Receive Date: 20060221
  Receipt Date: 20060201
  Transmission Date: 20060701
  Serious: Yes (Other)
  Sender: FDA-Public Use
  Company Number: PHBS2006JP01910

PATIENT
  Age: 33 Year
  Sex: Male

DRUGS (3)
  1. TEGRETOL [Suspect]
     Dosage: 600 MG/DAY
     Route: 048
     Dates: start: 19970101
  2. CHLORPROMAZINE HCL [Concomitant]
     Indication: MENTAL RETARDATION SEVERITY UNSPECIFIED
     Dosage: 500 MG/DAY
     Route: 048
     Dates: start: 19900101
  3. PHENOBAL [Concomitant]
     Dosage: 40 MG/DAY
     Route: 048
     Dates: start: 19970101

REACTIONS (1)
  - WATER INTOXICATION [None]
